FAERS Safety Report 15678892 (Version 1)
Quarter: 2018Q4

REPORT INFORMATION
  Report Type: Spontaneous
  Country: US (occurrence: US)
  Receive Date: 20181202
  Receipt Date: 20181202
  Transmission Date: 20190205
  Serious: No
  Sender: FDA-Public Use
  Company Number: US-009507513-1811USA012094

PATIENT
  Age: 25 Year
  Sex: Male

DRUGS (2)
  1. FLUTICASONE PROPIONATE. [Suspect]
     Active Substance: FLUTICASONE PROPIONATE
  2. PROVENTIL [Suspect]
     Active Substance: ALBUTEROL

REACTIONS (1)
  - Drug ineffective [Unknown]
